FAERS Safety Report 6858326-8 (Version None)
Quarter: 2010Q3

REPORT INFORMATION
  Report Type: 
  Country: None (occurrence: None)
  Receive Date: 20100719
  Receipt Date: 20080625
  Transmission Date: 20110219
  Serious: No
  Sender: FDA-Public Use
  Company Number: US-PFIZER INC-2008010776

PATIENT
  Sex: Female
  Weight: 104.33 kg

DRUGS (11)
  1. CHANTIX [Suspect]
     Indication: SMOKING CESSATION THERAPY
     Route: 048
     Dates: start: 20060518, end: 20080101
  2. SEROQUEL [Concomitant]
  3. KLONOPIN [Concomitant]
  4. EFFEXOR [Concomitant]
  5. LIPITOR [Concomitant]
  6. ZETIA [Concomitant]
  7. COZAAR [Concomitant]
  8. ACTOS [Concomitant]
  9. GLUCOPHAGE [Concomitant]
  10. NALTREXONE [Concomitant]
  11. ALL OTHER THERAPEUTIC PRODUCTS [Concomitant]

REACTIONS (3)
  - ABNORMAL DREAMS [None]
  - STRESS [None]
  - VAGINAL DISORDER [None]
